FAERS Safety Report 4368513-9 (Version None)
Quarter: 2004Q2

REPORT INFORMATION
  Report Type: 
  Country: None (occurrence: None)
  Receive Date: 20040602
  Receipt Date: 20040129
  Transmission Date: 20050107
  Serious: Yes (Other)
  Sender: FDA-Public Use
  Company Number: US-GLAXOSMITHKLINE-A0495758A

PATIENT
  Age: 4 Year
  Sex: Male
  Weight: 18.6 kg

DRUGS (1)
  1. AUGMENTIN ES-600 [Suspect]
     Indication: SINUSITIS
     Dosage: 1TSP TWICE PER DAY
     Route: 048
     Dates: start: 20040121, end: 20040101

REACTIONS (2)
  - ERYTHEMA MULTIFORME [None]
  - PRURITUS [None]
